FAERS Safety Report 5063952-5 (Version None)
Quarter: 2006Q3

REPORT INFORMATION
  Report Type: 
  Country: None (occurrence: None)
  Receive Date: 20060727
  Receipt Date: 20060424
  Transmission Date: 20061208
  Serious: Yes (Hospitalization)
  Sender: FDA-Public Use
  Company Number: AU-MERCK-0604AUS00194

PATIENT
  Age: 45 Year
  Sex: Male

DRUGS (4)
  1. EMEND [Suspect]
     Indication: PROPHYLAXIS OF NAUSEA AND VOMITING
     Route: 048
     Dates: start: 20060419, end: 20060419
  2. EMEND [Suspect]
     Route: 048
     Dates: start: 20060420, end: 20060421
  3. CYCLOPHOSPHAMIDE [Suspect]
     Indication: CHRONIC LYMPHOCYTIC LEUKAEMIA
     Route: 065
     Dates: start: 20060419, end: 20060421
  4. FLUOROURACIL [Suspect]
     Indication: CHRONIC LYMPHOCYTIC LEUKAEMIA
     Route: 065
     Dates: start: 20060419, end: 20060421

REACTIONS (3)
  - HEADACHE [None]
  - HYPERACUSIS [None]
  - PHOTOPHOBIA [None]
